FAERS Safety Report 12796797 (Version 1)
Quarter: 2016Q3

REPORT INFORMATION
  Report Type: Spontaneous
  Country: BR (occurrence: BR)
  Receive Date: 20160929
  Receipt Date: 20160929
  Transmission Date: 20161109
  Serious: Yes (Hospitalization)
  Sender: FDA-Public Use
  Company Number: BR-PFIZER INC-2016358231

PATIENT
  Age: 53 Year
  Sex: Female

DRUGS (2)
  1. SUTENT [Suspect]
     Active Substance: SUNITINIB MALATE
     Dosage: 50 MG, CYCLIC (2/2)
  2. SUTENT [Suspect]
     Active Substance: SUNITINIB MALATE
     Indication: NEOPLASM MALIGNANT
     Dosage: 50 MG, CYCLIC (2/1)
     Dates: start: 201606

REACTIONS (12)
  - Acne [Not Recovered/Not Resolved]
  - Dyspnoea [Unknown]
  - Oral candidiasis [Unknown]
  - Decreased immune responsiveness [Unknown]
  - Oral herpes [Unknown]
  - Facial paralysis [Unknown]
  - Rash [Not Recovered/Not Resolved]
  - Mouth injury [Unknown]
  - Aphthous ulcer [Unknown]
  - Burning sensation [Not Recovered/Not Resolved]
  - Asthenia [Unknown]
  - Pruritus [Unknown]

NARRATIVE: CASE EVENT DATE: 2016
